FAERS Safety Report 16269708 (Version 3)
Quarter: 2020Q3

REPORT INFORMATION
  Report Type: Spontaneous
  Country: US (occurrence: US)
  Receive Date: 20190503
  Receipt Date: 20200909
  Transmission Date: 20201102
  Serious: Yes (Hospitalization, Disabling, Other)
  Sender: FDA-Public Use
  Company Number: US-JNJFOC-20190500934

PATIENT
  Age: 79 Year
  Sex: Male

DRUGS (1)
  1. INVOKANA [Suspect]
     Active Substance: CANAGLIFLOZIN
     Indication: DIABETES MELLITUS MANAGEMENT
     Route: 048
     Dates: start: 201605

REACTIONS (4)
  - Impaired healing [Recovering/Resolving]
  - Gangrene [Recovering/Resolving]
  - Diabetic ketoacidosis [Unknown]
  - Limb amputation [Unknown]

NARRATIVE: CASE EVENT DATE: 201804
